FAERS Safety Report 5972036-0 (Version None)
Quarter: 2008Q4

REPORT INFORMATION
  Report Type: 
  Country: None (occurrence: None)
  Receive Date: 20081124
  Receipt Date: 20081112
  Transmission Date: 20090506
  Serious: Yes (Death, Hospitalization)
  Sender: FDA-Public Use
  Company Number: TUK2008A00144

PATIENT

DRUGS (7)
  1. ACTOS [Suspect]
     Indication: DIABETES MELLITUS
  2. METFORMIN HCL [Suspect]
     Indication: DIABETES MELLITUS
  3. ACE INHIBITOR (ACE INHIBITOR NOS) [Suspect]
  4. LOOP DIURETICS (DIURETICS) [Suspect]
  5. ACETYLSALICYLIC ACID SRT [Suspect]
     Indication: ANTIPLATELET THERAPY
  6. INSULIN (INSULIN) [Suspect]
     Indication: DIABETES MELLITUS
  7. STATIN (HMG COA REDUCTASE INHIBTORS) [Suspect]

REACTIONS (2)
  - INTERMITTENT CLAUDICATION [None]
  - SEPSIS [None]
